FAERS Safety Report 4827618-6 (Version None)
Quarter: 2005Q4

REPORT INFORMATION
  Report Type: 
  Country: None (occurrence: None)
  Receive Date: 20051110
  Receipt Date: 20051101
  Transmission Date: 20060501
  Serious: Yes (Hospitalization)
  Sender: FDA-Public Use
  Company Number: DE_051117392

PATIENT
  Age: 61 Year
  Sex: Male

DRUGS (6)
  1. ALIMTA [Suspect]
     Indication: PLEURAL MESOTHELIOMA
     Dosage: 500 MG/M2
     Dates: start: 20050101, end: 20051026
  2. DEXAMETHASON (DEXAMETHASONE SODIUM PHOSPHATE) [Concomitant]
  3. LAFOL (FOLIC ACID) [Concomitant]
  4. VITAMIN B-12 [Concomitant]
  5. NEXIUM [Concomitant]
  6. OXYGEN [Concomitant]

REACTIONS (14)
  - BLISTER [None]
  - FEELING ABNORMAL [None]
  - FEELING HOT AND COLD [None]
  - HYPERKERATOSIS [None]
  - LIVIDITY [None]
  - MICROANGIOPATHY [None]
  - NEOPLASM PROGRESSION [None]
  - OEDEMA PERIPHERAL [None]
  - PAIN IN EXTREMITY [None]
  - PLEURAL EFFUSION [None]
  - SCLERODERMA [None]
  - SENSORY LOSS [None]
  - SKIN DISCOLOURATION [None]
  - TRANSAMINASES INCREASED [None]
